FAERS Safety Report 10519208 (Version 1)
Quarter: 2014Q4

REPORT INFORMATION
  Report Type: Spontaneous
  Country: US (occurrence: None)
  Receive Date: 20141014
  Receipt Date: 20141014
  Transmission Date: 20150528
  Serious: Yes (Disabling)
  Sender: FDA-Public Use
  Company Number: None

PATIENT
  Age: 41 Year
  Sex: Female
  Weight: 73.48 kg

DRUGS (1)
  1. KENALOG [Suspect]
     Active Substance: TRIAMCINOLONE ACETONIDE
     Indication: ALOPECIA AREATA
     Dosage: INJECTION
     Dates: start: 20140623

REACTIONS (21)
  - Paraesthesia [None]
  - Neck pain [None]
  - Quality of life decreased [None]
  - Dysstasia [None]
  - Pain in extremity [None]
  - Dyspnoea [None]
  - Nausea [None]
  - Flushing [None]
  - Activities of daily living impaired [None]
  - Hypoaesthesia [None]
  - Asthenia [None]
  - Vision blurred [None]
  - Neck mass [None]
  - Vertigo [None]
  - Vomiting [None]
  - Headache [None]
  - Dysphagia [None]
  - Blood pressure decreased [None]
  - Facial pain [None]
  - Musculoskeletal pain [None]
  - Impaired self-care [None]

NARRATIVE: CASE EVENT DATE: 20140623
